FAERS Safety Report 4957182-2 (Version None)
Quarter: 2006Q1

REPORT INFORMATION
  Report Type: 
  Country: None (occurrence: None)
  Receive Date: 20060329
  Receipt Date: 20050909
  Transmission Date: 20060701
  Serious: Yes (Hospitalization, Disabling)
  Sender: FDA-Public Use
  Company Number: US-MERCK-0509USA01481

PATIENT
  Age: 62 Year
  Sex: Female
  Weight: 123 kg

DRUGS (10)
  1. VIOXX [Suspect]
     Indication: OSTEOARTHRITIS
     Route: 048
     Dates: start: 20000101, end: 20040119
  2. METFORMIN [Concomitant]
     Indication: DIABETES MELLITUS NON-INSULIN-DEPENDENT
     Route: 065
  3. CIPROFLOXACIN [Concomitant]
     Route: 065
  4. SYMAX [Concomitant]
     Indication: GASTROINTESTINAL DISORDER
     Route: 065
  5. PENICILLIN VK [Concomitant]
     Route: 065
  6. AMOXICILLIN [Concomitant]
     Route: 065
  7. LEVAQUIN [Concomitant]
     Route: 065
  8. CELEBREX [Concomitant]
     Route: 065
  9. ASPIRIN [Concomitant]
     Indication: PROPHYLAXIS
     Route: 065
     Dates: start: 19990101
  10. AMARYL [Concomitant]
     Route: 065

REACTIONS (3)
  - ACUTE MYOCARDIAL INFARCTION [None]
  - CORONARY ARTERY DISEASE [None]
  - SICK SINUS SYNDROME [None]
